FAERS Safety Report 7815227-6 (Version None)
Quarter: 2011Q4

REPORT INFORMATION
  Report Type: 
  Country: None (occurrence: None)
  Receive Date: 20111014
  Receipt Date: 20111004
  Transmission Date: 20120403
  Serious: Yes (Death, Hospitalization)
  Sender: FDA-Public Use
  Company Number: CA-JNJFOC-20100600476

PATIENT
  Age: 23 Year
  Sex: Male

DRUGS (3)
  1. AZATHIOPRINE [Concomitant]
     Indication: CROHN'S DISEASE
  2. REMICADE [Suspect]
     Indication: CROHN'S DISEASE
     Route: 042
  3. MERCAPTOPURINE [Concomitant]

REACTIONS (4)
  - EPSTEIN-BARR VIRUS INFECTION [None]
  - HISTIOCYTOSIS HAEMATOPHAGIC [None]
  - SEPTIC SHOCK [None]
  - HEPATOSPLENIC T-CELL LYMPHOMA [None]
